FAERS Safety Report 15976115 (Version 2)
Quarter: 2019Q1

REPORT INFORMATION
  Report Type: Spontaneous
  Country: US (occurrence: US)
  Receive Date: 20190218
  Receipt Date: 20190225
  Transmission Date: 20190418
  Serious: No
  Sender: FDA-Public Use
  Company Number: US-PFIZER INC-2019066465

PATIENT
  Age: 52 Year
  Sex: Male

DRUGS (8)
  1. CARBAMAZEPINE. [Suspect]
     Active Substance: CARBAMAZEPINE
     Dosage: UNK
  2. METFORMIN HCL [Suspect]
     Active Substance: METFORMIN HYDROCHLORIDE
     Dosage: UNK
  3. BUPROPION. [Suspect]
     Active Substance: BUPROPION
     Dosage: UNK
  4. GABAPENTIN. [Suspect]
     Active Substance: GABAPENTIN
     Dosage: UNK
  5. FUROSEMIDE. [Suspect]
     Active Substance: FUROSEMIDE
     Dosage: UNK
  6. BUPROPION HCL [Suspect]
     Active Substance: BUPROPION HYDROCHLORIDE
     Dosage: UNK
  7. OXYCODONE [Suspect]
     Active Substance: OXYCODONE
     Dosage: UNK
  8. METFORMIN [Suspect]
     Active Substance: METFORMIN HYDROCHLORIDE
     Dosage: UNK

REACTIONS (1)
  - Drug hypersensitivity [Unknown]
